FAERS Safety Report 7324117-7 (Version None)
Quarter: 2011Q1

REPORT INFORMATION
  Report Type: 
  Country: None (occurrence: None)
  Receive Date: 20110217
  Receipt Date: 20110214
  Transmission Date: 20110831
  Serious: Yes (Other)
  Sender: FDA-Public Use
  Company Number: TRP_07576_2011

PATIENT
  Sex: Female

DRUGS (2)
  1. RIBAVIRIN [Suspect]
     Indication: PRODUCT USED FOR UNKNOWN INDICATION
     Dosage: (DF ORAL)
     Route: 048
  2. PEGASYS [Suspect]
     Indication: PRODUCT USED FOR UNKNOWN INDICATION
     Dosage: (DF)

REACTIONS (7)
  - HOT FLUSH [None]
  - FEELING OF BODY TEMPERATURE CHANGE [None]
  - MEDICATION ERROR [None]
  - VOMITING [None]
  - INSOMNIA [None]
  - PAIN [None]
  - INCORRECT DOSE ADMINISTERED [None]
